FAERS Safety Report 8301822 (Version 15)
Quarter: 2016Q2

REPORT INFORMATION
  Report Type: Spontaneous
  Country: US (occurrence: US)
  Receive Date: 20111220
  Receipt Date: 20160427
  Transmission Date: 20160815
  Serious: Yes (Hospitalization, Other)
  Sender: FDA-Public Use
  Company Number: US-GLAXOSMITHKLINE-A0898887A

PATIENT
  Age: 84 Year
  Sex: Female

DRUGS (13)
  1. RYTHMOL [Suspect]
     Active Substance: PROPAFENONE HYDROCHLORIDE
     Indication: ATRIAL FIBRILLATION
     Dosage: 225 MG, TID
     Route: 048
     Dates: start: 1995
  2. MAGNESIUM [Concomitant]
     Active Substance: MAGNESIUM
  3. PROPAFENONE HYDROCHLORIDE. [Suspect]
     Active Substance: PROPAFENONE HYDROCHLORIDE
     Indication: CARDIAC DISORDER
  4. ARYTHMOL [Suspect]
     Active Substance: PROPAFENONE HYDROCHLORIDE
     Indication: PRODUCT USED FOR UNKNOWN INDICATION
     Dosage: 150 MG, Z
  5. IMDUR [Concomitant]
     Active Substance: ISOSORBIDE MONONITRATE
  6. METOPROLOL. [Concomitant]
     Active Substance: METOPROLOL
  7. PRAVASTATIN [Concomitant]
     Active Substance: PRAVASTATIN\PRAVASTATIN SODIUM
  8. PLAVIX [Concomitant]
     Active Substance: CLOPIDOGREL BISULFATE
  9. RYTHMOL [Suspect]
     Active Substance: PROPAFENONE HYDROCHLORIDE
     Indication: ARRHYTHMIA
     Dosage: 150 MG, TID
     Route: 048
     Dates: start: 1994
  10. RYTHMOL [Suspect]
     Active Substance: PROPAFENONE HYDROCHLORIDE
     Dosage: 150MG EVERY 6.5 TO 7 HOURS.
  11. PROPAFENONE HYDROCHLORIDE. [Suspect]
     Active Substance: PROPAFENONE HYDROCHLORIDE
     Indication: ATRIAL FIBRILLATION
     Dosage: 150 MG, SINGLE
     Dates: start: 1995
  12. CARDIZEM [Concomitant]
     Active Substance: DILTIAZEM HYDROCHLORIDE
  13. ASPIRIN. [Concomitant]
     Active Substance: ASPIRIN

REACTIONS (25)
  - Chest pain [Recovering/Resolving]
  - Incorrect product storage [Unknown]
  - Fall [Not Recovered/Not Resolved]
  - Drug ineffective [Unknown]
  - Dyspnoea [Unknown]
  - Nausea [Recovered/Resolved]
  - Arrhythmia [Not Recovered/Not Resolved]
  - Atrial fibrillation [Recovered/Resolved]
  - Hospitalisation [Unknown]
  - Cough [Recovered/Resolved]
  - Performance status decreased [Unknown]
  - Headache [Unknown]
  - Fractured coccyx [Not Recovered/Not Resolved]
  - Muscle strain [Unknown]
  - Expired product administered [Unknown]
  - Abasia [Unknown]
  - Arthralgia [Not Recovered/Not Resolved]
  - Hip surgery [Unknown]
  - Dizziness [Recovering/Resolving]
  - Drug intolerance [Recovered/Resolved]
  - Product quality issue [Unknown]
  - Asthenia [Recovering/Resolving]
  - Insomnia [Recovering/Resolving]
  - Hip fracture [Recovering/Resolving]
  - Overdose [Unknown]

NARRATIVE: CASE EVENT DATE: 1995
